FAERS Safety Report 4485100-2 (Version None)
Quarter: 2004Q4

REPORT INFORMATION
  Report Type: 
  Country: None (occurrence: None)
  Receive Date: 20041026
  Receipt Date: 20031009
  Transmission Date: 20050328
  Serious: No
  Sender: FDA-Public Use
  Company Number: US-BRISTOL-MYERS SQUIBB COMPANY-12407128

PATIENT
  Age: 43 Year
  Sex: Male

DRUGS (10)
  1. GLUCOPHAGE XR [Suspect]
  2. CORGARD [Concomitant]
  3. DIGOXIN [Concomitant]
  4. NORVASC [Concomitant]
  5. ENALAPRIL MALEATE [Concomitant]
  6. SPIRONOLACTONE [Concomitant]
  7. LASIX [Concomitant]
  8. POTASSIUM CHLORIDE [Concomitant]
  9. NEXIUM [Concomitant]
  10. GLUCOTROL XL [Concomitant]

REACTIONS (2)
  - PAIN IN EXTREMITY [None]
  - PALPITATIONS [None]
